FAERS Safety Report 18740402 (Version 1)
Quarter: 2021Q1

REPORT INFORMATION
  Report Type: Spontaneous
  Country: US (occurrence: US)
  Receive Date: 20210114
  Receipt Date: 20210114
  Transmission Date: 20210419
  Serious: Yes (Hospitalization)
  Sender: FDA-Public Use
  Company Number: None

PATIENT
  Age: 60 Year
  Sex: Female
  Weight: 94.05 kg

DRUGS (11)
  1. BAMLANIVIMAB. [Suspect]
     Active Substance: BAMLANIVIMAB
     Indication: COVID-19
     Dosage: ?          OTHER FREQUENCY:ONCE;?
     Route: 042
     Dates: start: 20210108, end: 20210108
  2. GABAPENTIN. [Concomitant]
     Active Substance: GABAPENTIN
     Dates: start: 20210104, end: 20210114
  3. OMEPRAZOLE. [Concomitant]
     Active Substance: OMEPRAZOLE
     Dates: start: 20080402
  4. LACTOBACILLUS RHAMNOSUS [Concomitant]
     Active Substance: LACTOBACILLUS RHAMNOSUS
     Dates: start: 20201228
  5. LOSARTAN. [Concomitant]
     Active Substance: LOSARTAN
     Dates: start: 20201012
  6. CALCIUM SUPPLEMENT [Concomitant]
     Active Substance: CALCIUM
  7. HYDROCODONE?HOMATROPINE [Concomitant]
     Dates: start: 20210111
  8. APIXABAN [Concomitant]
     Active Substance: APIXABAN
     Dates: start: 20210101
  9. 81 MG ASPIRIN [Concomitant]
     Active Substance: ASPIRIN
     Dates: start: 20130213
  10. VITAMIN D3 [Concomitant]
     Active Substance: CHOLECALCIFEROL
     Dates: start: 20171114, end: 20210114
  11. TRIAMTERENE AND HYDROCHLOROTHIAZIDE [Concomitant]
     Active Substance: HYDROCHLOROTHIAZIDE\TRIAMTERENE
     Dates: start: 20191226, end: 20210114

REACTIONS (6)
  - Diarrhoea [None]
  - Cough [None]
  - COVID-19 [None]
  - Asthenia [None]
  - Fatigue [None]
  - Dyspnoea [None]

NARRATIVE: CASE EVENT DATE: 20210111
